FAERS Safety Report 25376813 (Version 1)
Quarter: 2025Q2

REPORT INFORMATION
  Report Type: Spontaneous
  Country: US (occurrence: US)
  Receive Date: 20250530
  Receipt Date: 20250530
  Transmission Date: 20250716
  Serious: Yes (Hospitalization)
  Sender: AMGEN
  Company Number: US-AMGEN-USASP2025100160

PATIENT
  Age: 36 Year
  Sex: Female

DRUGS (8)
  1. PREDNISONE [Suspect]
     Active Substance: PREDNISONE
     Indication: Hyperthyroidism
     Dosage: 40 MILLIGRAM, QD
     Route: 048
  2. METHIMAZOLE [Concomitant]
     Active Substance: METHIMAZOLE
     Dosage: 20 MILLIGRAM, QD
     Route: 048
  3. METHIMAZOLE [Concomitant]
     Active Substance: METHIMAZOLE
     Dosage: 20 MILLIGRAM, Q12H
     Route: 048
  4. METOPROLOL TARTRATE [Concomitant]
     Active Substance: METOPROLOL TARTRATE
     Dosage: 12 MILLIGRAM, Q12H
     Route: 048
  5. PROPRANOLOL [Concomitant]
     Active Substance: PROPRANOLOL HYDROCHLORIDE
     Dosage: 20 MILLIGRAM, Q6H
     Route: 048
  6. PROPYLTHIOURACIL [Concomitant]
     Active Substance: PROPYLTHIOURACIL
     Dosage: 200 MILLIGRAM, Q8H
     Route: 048
  7. PROPYLTHIOURACIL [Concomitant]
     Active Substance: PROPYLTHIOURACIL
     Dosage: 50 MILLIGRAM, Q8H
     Route: 048
  8. IODINE\POTASSIUM IODIDE [Concomitant]
     Active Substance: IODINE\POTASSIUM IODIDE

REACTIONS (4)
  - Vaginal haemorrhage [Unknown]
  - Drug effective for unapproved indication [Unknown]
  - Maternal exposure during pregnancy [Unknown]
  - Off label use [Unknown]
